FAERS Safety Report 4276636-8 (Version None)
Quarter: 2004Q1

REPORT INFORMATION
  Report Type: 
  Country: None (occurrence: None)
  Receive Date: 20040120
  Receipt Date: 20040107
  Transmission Date: 20041129
  Serious: Yes (Hospitalization, Congenital Anomaly)
  Sender: FDA-Public Use
  Company Number: 2003-07-3017

PATIENT
  Age: 1 Day
  Sex: Female
  Weight: 2.7216 kg

DRUGS (3)
  1. ELOCON [Suspect]
     Indication: SYSTEMIC LUPUS ERYTHEMATOSUS RASH
     Dosage: BID TOP-DERM
     Route: 061
     Dates: start: 20020720, end: 20020817
  2. PAXIL [Concomitant]
  3. ORTHO TRI-CYCLEN [Concomitant]

REACTIONS (5)
  - CLEFT LIP [None]
  - CLEFT PALATE [None]
  - DENTAL ALVEOLAR ANOMALY [None]
  - MATERNAL DRUGS AFFECTING FOETUS [None]
  - PREGNANCY [None]
